FAERS Safety Report 15878940 (Version 1)
Quarter: 2019Q1

REPORT INFORMATION
  Report Type: Spontaneous
  Country: FR (occurrence: FR)
  Receive Date: 20190128
  Receipt Date: 20190128
  Transmission Date: 20190417
  Serious: Yes (Hospitalization)
  Sender: FDA-Public Use
  Company Number: FR-009507513-0604FRA00006

PATIENT
  Age: 79 Year
  Sex: Female

DRUGS (2)
  1. IMIPENEM AND CILASTATIN [Suspect]
     Active Substance: CILASTATIN SODIUM\IMIPENEM
     Indication: UNEVALUABLE EVENT
     Dosage: 1000 MG (DOSE ALSO REPORTED AS 1 GRAM); 3 TIMES PER DAY; TOTAL DAILY DOSE: 3 G, ROUTE ALSO REPORTED
     Route: 042
     Dates: start: 20060215, end: 20060219
  2. CIFLOX (CIPROFLOXACIN HYDROCHLORIDE) [Suspect]
     Active Substance: CIPROFLOXACIN HYDROCHLORIDE
     Indication: UNEVALUABLE EVENT
     Dosage: 500 MG, BID
     Route: 048
     Dates: start: 20060215, end: 20060219

REACTIONS (4)
  - Hyperglycaemia [Recovered/Resolved]
  - Syncope [Recovered/Resolved]
  - Hypoglycaemia [Recovered/Resolved]
  - Generalised tonic-clonic seizure [Recovered/Resolved]

NARRATIVE: CASE EVENT DATE: 20060219
